FAERS Safety Report 6013421-0 (Version None)
Quarter: 2008Q4

REPORT INFORMATION
  Report Type: 
  Country: None (occurrence: None)
  Receive Date: 20081219
  Receipt Date: 20081211
  Transmission Date: 20090506
  Serious: Yes (Hospitalization, Other)
  Sender: FDA-Public Use
  Company Number: US-PFIZER INC-2008051922

PATIENT
  Sex: Male
  Weight: 72.562 kg

DRUGS (9)
  1. LIPITOR [Suspect]
     Indication: BLOOD CHOLESTEROL INCREASED
     Dosage: UNK
     Dates: start: 20041101, end: 20070401
  2. LIPITOR [Suspect]
     Indication: CARDIAC OPERATION
     Dates: start: 20021101, end: 20070401
  3. MACROGOL [Concomitant]
     Dosage: UNK
  4. FLONASE [Concomitant]
     Dosage: UNK
  5. OXYGEN [Concomitant]
     Dosage: UNK
  6. ADVAIR DISKUS 250/50 [Concomitant]
     Dosage: UNK
  7. SPIRIVA [Concomitant]
     Dosage: UNK
  8. ALBUTEROL [Concomitant]
     Dosage: UNK
  9. CALCIUM WITH VITAMIN D [Concomitant]
     Dosage: 500 MG, 1X/DAY

REACTIONS (11)
  - ARTHRALGIA [None]
  - CARDIAC ABLATION [None]
  - ENZYME ABNORMALITY [None]
  - HEARING IMPAIRED [None]
  - HERNIA REPAIR [None]
  - HYPERSENSITIVITY [None]
  - ILL-DEFINED DISORDER [None]
  - LOSS OF CONSCIOUSNESS [None]
  - MUSCLE DISORDER [None]
  - MYALGIA [None]
  - RENAL FAILURE ACUTE [None]
